FAERS Safety Report 23539080 (Version 1)
Quarter: 2024Q1

REPORT INFORMATION
  Report Type: Spontaneous
  Country: CZ (occurrence: CZ)
  Receive Date: 20240219
  Receipt Date: 20240219
  Transmission Date: 20240410
  Serious: Yes (Life-Threatening)
  Sender: FDA-Public Use
  Company Number: CZ-JNJFOC-20240108780

PATIENT
  Sex: Female

DRUGS (15)
  1. DEXAMETHASONE [Suspect]
     Active Substance: DEXAMETHASONE
     Indication: Plasma cell myeloma
     Dosage: KRD REGIMEN, 8 CYCLES
     Route: 065
     Dates: start: 2020, end: 2021
  2. DEXAMETHASONE [Suspect]
     Active Substance: DEXAMETHASONE
     Dosage: DRD REGIMEN, 8 CYCLES
     Route: 065
     Dates: start: 2021, end: 2022
  3. DEXAMETHASONE [Suspect]
     Active Substance: DEXAMETHASONE
     Indication: Plasma cell myeloma
     Dosage: BDD REGIMEN
     Route: 065
     Dates: start: 2014, end: 2017
  4. DEXAMETHASONE [Suspect]
     Active Substance: DEXAMETHASONE
     Dosage: RD COMBINATION
     Route: 065
     Dates: start: 2017, end: 2018
  5. DEXAMETHASONE [Suspect]
     Active Substance: DEXAMETHASONE
     Route: 065
     Dates: start: 2018, end: 2020
  6. BORTEZOMIB [Suspect]
     Active Substance: BORTEZOMIB
     Indication: Plasma cell myeloma
     Dosage: BDD REGIMEN
     Route: 065
     Dates: start: 2014, end: 2017
  7. BORTEZOMIB [Suspect]
     Active Substance: BORTEZOMIB
     Route: 065
     Dates: start: 2018, end: 2020
  8. DOXORUBICIN [Suspect]
     Active Substance: DOXORUBICIN
     Indication: Plasma cell myeloma
     Dosage: BDD REGIMEN
     Route: 065
     Dates: start: 2014, end: 2017
  9. IXAZOMIB [Suspect]
     Active Substance: IXAZOMIB
     Indication: Plasma cell myeloma
     Dosage: 20 TREATMENT CYCLES
     Route: 065
  10. LENALIDOMIDE [Suspect]
     Active Substance: LENALIDOMIDE
     Indication: Plasma cell myeloma
     Dosage: RD COMBINATION
     Route: 065
     Dates: start: 2017, end: 2018
  11. LENALIDOMIDE [Suspect]
     Active Substance: LENALIDOMIDE
     Dosage: KRD REGIMEN, 8 CYCLES
     Route: 065
     Dates: start: 2020, end: 2021
  12. LENALIDOMIDE [Suspect]
     Active Substance: LENALIDOMIDE
     Dosage: DRD REGIMEN, 8 CYCLES
     Route: 065
     Dates: start: 2021, end: 2022
  13. SELINEXOR [Suspect]
     Active Substance: SELINEXOR
     Indication: Plasma cell myeloma
     Route: 065
     Dates: start: 2018, end: 2020
  14. CARFILZOMIB [Suspect]
     Active Substance: CARFILZOMIB
     Indication: Plasma cell myeloma
     Dosage: KRD REGIMEN, 8 CYCLES
     Route: 065
     Dates: start: 2020, end: 2021
  15. DARATUMUMAB [Suspect]
     Active Substance: DARATUMUMAB
     Indication: Plasma cell myeloma
     Dosage: DRD REGIMEN, 8 CYCLES
     Route: 065
     Dates: start: 2021, end: 2022

REACTIONS (1)
  - Therapy partial responder [Unknown]
